FAERS Safety Report 8900885 (Version 1)
Quarter: 2012Q4

REPORT INFORMATION
  Report Type: Report from Study
  Country: AU (occurrence: AU)
  Receive Date: 20121109
  Receipt Date: 20121109
  Transmission Date: 20130627
  Serious: Yes (Hospitalization)
  Sender: FDA-Public Use
  Company Number: AU-ELI_LILLY_AND_COMPANY-AU201211000894

PATIENT
  Age: 62 Year
  Sex: Male
  Weight: 104 kg

DRUGS (24)
  1. GEMCITABINE HYDROCHLORIDE [Suspect]
     Indication: PANCREATIC CARCINOMA METASTATIC
     Dosage: 2200 mg, UNK
     Route: 042
     Dates: start: 20120305
  2. GEMCITABINE HYDROCHLORIDE [Suspect]
     Dosage: 1320 mg, UNK
     Route: 042
     Dates: start: 20120904
  3. PACLITAXEL [Suspect]
     Indication: PANCREATIC CARCINOMA METASTATIC
     Dosage: 275 mg, UNK
     Route: 042
     Dates: start: 20120305
  4. PACLITAXEL [Suspect]
     Dosage: 165 mg, UNK
     Route: 042
     Dates: start: 20120904
  5. NEUPOGEN [Concomitant]
     Indication: PROPHYLAXIS
     Dosage: UNK
     Route: 058
     Dates: start: 20120814, end: 20120818
  6. DERMADRATE [Concomitant]
     Indication: SKIN FISSURES
     Dosage: UNK
     Route: 061
     Dates: start: 20120820, end: 20120904
  7. BACLOFEN [Concomitant]
     Indication: HICCUPS
     Dosage: UNK
     Route: 048
     Dates: start: 20120831
  8. FUROSEMIDE [Concomitant]
     Indication: ANAEMIA
     Dosage: UNK
     Route: 042
     Dates: start: 20120905, end: 20120905
  9. GRANISETRON [Concomitant]
     Indication: PROPHYLAXIS
     Dosage: UNK
     Route: 042
     Dates: start: 20120305
  10. GRANISETRON [Concomitant]
     Dosage: UNK
     Route: 048
     Dates: start: 20120306
  11. PANADEINE [Concomitant]
     Indication: OSTEOARTHRITIS
     Dosage: UNK
     Route: 048
     Dates: start: 201204
  12. DEXAMETHASONE [Concomitant]
     Indication: PROPHYLAXIS
     Dosage: UNK
     Route: 042
     Dates: start: 20120305
  13. LOPERAMIDE [Concomitant]
     Indication: DIARRHOEA
     Dosage: UNK
     Route: 048
     Dates: start: 20120316
  14. METOCHLOPRAMIDE [Concomitant]
     Indication: DYSPEPSIA
     Dosage: UNK
     Route: 048
     Dates: start: 20120308
  15. PARIET [Concomitant]
     Indication: DYSPEPSIA
     Dosage: UNK
     Route: 048
     Dates: start: 20120308
  16. GEMFIBROZIL [Concomitant]
     Indication: CHOLESTEROSIS
     Dosage: UNK
     Route: 048
     Dates: start: 201102
  17. DIABEX [Concomitant]
     Indication: DIABETES MELLITUS
     Dosage: UNK
     Route: 048
     Dates: start: 20111216
  18. DIAMICRON [Concomitant]
     Indication: DIABETES MELLITUS
     Dosage: UNK
     Route: 048
     Dates: start: 20111216
  19. GALVUS [Concomitant]
     Indication: DIABETES MELLITUS
     Dosage: UNK
     Route: 048
     Dates: start: 20120222
  20. CLEXANE [Concomitant]
     Indication: PULMONARY EMBOLISM
     Dosage: UNK
     Route: 058
     Dates: start: 20120222
  21. TARGIN [Concomitant]
     Indication: ABDOMINAL PAIN
     Dosage: UNK
     Route: 048
     Dates: start: 20120228
  22. ENDONE [Concomitant]
     Indication: ABDOMINAL PAIN
     Dosage: UNK
     Route: 048
     Dates: start: 20120228
  23. FISH OIL [Concomitant]
     Indication: SUPPLEMENTATION THERAPY
     Dosage: UNK
     Route: 048
     Dates: start: 2002
  24. GLUCOSAMINE SULFATE [Concomitant]
     Indication: OSTEOARTHRITIS
     Dosage: UNK
     Route: 048
     Dates: start: 2002

REACTIONS (2)
  - Oedema peripheral [Recovering/Resolving]
  - Erythema [Recovering/Resolving]
